FAERS Safety Report 15677508 (Version 2)
Quarter: 2018Q4

REPORT INFORMATION
  Report Type: Spontaneous
  Country: FR (occurrence: FR)
  Receive Date: 20181130
  Receipt Date: 20181207
  Transmission Date: 20190205
  Serious: Yes (Hospitalization)
  Sender: FDA-Public Use
  Company Number: FR-INDIVIOR LIMITED-INDV-115968-2018

PATIENT
  Age: 37 Year
  Sex: Male

DRUGS (2)
  1. BUPRENORPHINE. [Suspect]
     Active Substance: BUPRENORPHINE
     Indication: PRODUCT USED FOR UNKNOWN INDICATION
     Dosage: 8 MG, QD
     Route: 042
     Dates: start: 2003
  2. ALCOHOL. [Suspect]
     Active Substance: ALCOHOL
     Indication: ALCOHOL USE
     Dosage: 40-50 IU/DAY
     Route: 048
     Dates: start: 1993

REACTIONS (7)
  - Drug dependence [Not Recovered/Not Resolved]
  - Drug abuse [Not Recovered/Not Resolved]
  - Intentional product misuse [Recovering/Resolving]
  - Drug abuse [Recovered/Resolved]
  - Substance abuse [Recovering/Resolving]
  - Intentional product use issue [Unknown]
  - Alcohol abuse [Recovering/Resolving]

NARRATIVE: CASE EVENT DATE: 2003
